FAERS Safety Report 8828946 (Version 3)
Quarter: 2013Q4

REPORT INFORMATION
  Report Type: Spontaneous
  Country: US (occurrence: US)
  Receive Date: 20121008
  Receipt Date: 20131227
  Transmission Date: 20140711
  Serious: Yes (Other)
  Sender: FDA-Public Use
  Company Number: US-ASTRAZENECA-2010SE31467

PATIENT
  Age: 54 Year
  Sex: Female

DRUGS (2)
  1. NEXIUM [Suspect]
     Route: 048
     Dates: end: 20131209
  2. SEROQUEL [Suspect]
     Route: 048

REACTIONS (10)
  - Gastric neoplasm [Not Recovered/Not Resolved]
  - Cerebrovascular accident [Unknown]
  - Hyperchlorhydria [Unknown]
  - Respiratory disorder [Unknown]
  - Gastric ulcer [Unknown]
  - Gastrooesophageal reflux disease [Unknown]
  - Insomnia [Unknown]
  - Malaise [Unknown]
  - Abdominal pain upper [Unknown]
  - Drug dose omission [Not Recovered/Not Resolved]
